FAERS Safety Report 19876682 (Version 1)
Quarter: 2021Q3

REPORT INFORMATION
  Report Type: Spontaneous
  Country: US (occurrence: US)
  Receive Date: 20210923
  Receipt Date: 20210923
  Transmission Date: 20211014
  Serious: Yes (Hospitalization, Other)
  Sender: FDA-Public Use
  Company Number: NVSC2021US212685

PATIENT
  Age: 86 Year
  Sex: Male

DRUGS (1)
  1. TABRECTA [Suspect]
     Active Substance: CAPMATINIB
     Indication: NON-SMALL CELL LUNG CANCER METASTATIC
     Dosage: 400 MG, BID
     Route: 065
     Dates: start: 20210730, end: 20210915

REACTIONS (4)
  - Bradycardia [Unknown]
  - Atrial fibrillation [Unknown]
  - Dizziness [Unknown]
  - Renal failure [Unknown]
